FAERS Safety Report 9943210 (Version 2)
Quarter: 2014Q1

REPORT INFORMATION
  Report Type: Report from Study
  Country: AU (occurrence: AU)
  Receive Date: 20140303
  Receipt Date: 20140303
  Transmission Date: 20141002
  Serious: Yes (Life-Threatening, Hospitalization)
  Sender: FDA-Public Use
  Company Number: PHHO2014AU002062

PATIENT
  Age: 69 Year
  Sex: Female
  Weight: 56 kg

DRUGS (11)
  1. AFINITOR [Suspect]
     Indication: BREAST CANCER METASTATIC
     Dosage: 10 MG, QD
     Route: 048
     Dates: start: 20140123, end: 20140203
  2. EXEMESTANE [Suspect]
     Indication: BREAST CANCER
     Dosage: 25 MG, QD
     Route: 048
     Dates: start: 20140123, end: 20140203
  3. CLARITHROMYCIN [Suspect]
     Dosage: 500 MG, BID
     Route: 048
     Dates: start: 20140203, end: 20140207
  4. GENTAMICIN [Suspect]
     Dosage: 320 MG, BID
     Route: 042
     Dates: start: 20140203, end: 20140204
  5. KARVEA [Concomitant]
     Indication: HYPERTENSION
     Dosage: 300 MG, QD
     Route: 048
     Dates: start: 20140118, end: 20140203
  6. CRESTOR [Concomitant]
     Indication: BLOOD CHOLESTEROL INCREASED
     Dosage: 5 MG, QD
     Route: 048
     Dates: start: 201305, end: 20140203
  7. SERETIDE [Concomitant]
     Indication: EMPHYSEMA
     Dosage: 250/50 INH BD
     Dates: start: 201205, end: 20140203
  8. SPIRIVA [Concomitant]
     Indication: EMPHYSEMA
     Dosage: 18 MG, INH QD
     Dates: start: 201206, end: 20140203
  9. OXYCONTIN [Concomitant]
     Indication: NEURALGIA
     Dosage: 20 MG, QD
     Route: 048
     Dates: start: 201211
  10. EPILIM [Concomitant]
     Indication: NEURALGIA
     Dosage: 50 MG, QD
     Route: 048
     Dates: start: 201211, end: 20140203
  11. MAGENSIUM VITAFIT [Concomitant]

REACTIONS (2)
  - Sepsis [Not Recovered/Not Resolved]
  - Renal failure acute [Not Recovered/Not Resolved]
